FAERS Safety Report 10658071 (Version 2)
Quarter: 2015Q1

REPORT INFORMATION
  Report Type: Spontaneous
  Country: US (occurrence: US)
  Receive Date: 20141217
  Receipt Date: 20150102
  Transmission Date: 20150720
  Serious: Yes (Other)
  Sender: FDA-Public Use
  Company Number: US-AMGEN-USASP2014097926

PATIENT
  Age: 81 Year
  Sex: Female
  Weight: 49.8 kg

DRUGS (1)
  1. PROLIA [Suspect]
     Active Substance: DENOSUMAB
     Indication: OSTEOPOROSIS POSTMENOPAUSAL
     Dosage: 60 MG, Q6MO
     Route: 058
     Dates: start: 20120607, end: 20140609

REACTIONS (2)
  - Exposed bone in jaw [Unknown]
  - Exostosis of jaw [Unknown]

NARRATIVE: CASE EVENT DATE: 20141205
